FAERS Safety Report 15762731 (Version 1)
Quarter: 2018Q4

REPORT INFORMATION
  Report Type: Spontaneous
  Country: IT (occurrence: IT)
  Receive Date: 20181226
  Receipt Date: 20181226
  Transmission Date: 20190205
  Serious: Yes (Hospitalization)
  Sender: FDA-Public Use
  Company Number: IT-MYLANLABS-2018M1095796

PATIENT

DRUGS (2)
  1. MYCOPHENOLATE MOFETIL. [Suspect]
     Active Substance: MYCOPHENOLATE MOFETIL
     Indication: NEPHROTIC SYNDROME
     Dosage: UNK
     Route: 042
  2. RIBAVIRIN. [Suspect]
     Active Substance: RIBAVIRIN
     Indication: NEPHROTIC SYNDROME
     Dosage: UNK
     Route: 042

REACTIONS (1)
  - Cholangitis acute [Unknown]
